FAERS Safety Report 8305076-7 (Version None)
Quarter: 2012Q1

REPORT INFORMATION
  Report Type: 
  Country: None (occurrence: None)
  Receive Date: 20120326
  Receipt Date: 20110329
  Transmission Date: 20120608
  Serious: Yes (Other)
  Sender: FDA-Public Use
  Company Number: PHHY2011US26541

PATIENT
  Age: 80 Year
  Sex: Male

DRUGS (1)
  1. TASIGNA [Suspect]
     Indication: CHRONIC MYELOID LEUKAEMIA
     Dosage: 400 MG, DAILY, ORAL
     Route: 048
     Dates: start: 20110308, end: 20110318

REACTIONS (7)
  - HYPERGLYCAEMIA [None]
  - ATRIAL FIBRILLATION [None]
  - DYSPNOEA [None]
  - HAEMOGLOBIN DECREASED [None]
  - DIZZINESS [None]
  - EYE SWELLING [None]
  - ABDOMINAL PAIN UPPER [None]
